FAERS Safety Report 4753729-X (Version None)
Quarter: 2005Q3

REPORT INFORMATION
  Report Type: 
  Country: None (occurrence: None)
  Receive Date: 20050825
  Receipt Date: 20050817
  Transmission Date: 20060218
  Serious: Yes (Death)
  Sender: FDA-Public Use
  Company Number: CLOF-10063

PATIENT
  Age: 64 Year
  Sex: Male

DRUGS (1)
  1. CLOFARABINE [Suspect]
     Indication: ACUTE MYELOID LEUKAEMIA
     Dosage: 40 MG/M2 QD X 5 IV
     Route: 042
     Dates: start: 20031111, end: 20031115

REACTIONS (3)
  - NEUTROPENIC COLITIS [None]
  - RENAL FAILURE ACUTE [None]
  - TUMOUR LYSIS SYNDROME [None]
